FAERS Safety Report 16176087 (Version 7)
Quarter: 2020Q3

REPORT INFORMATION
  Report Type: Spontaneous
  Country: FR (occurrence: FR)
  Receive Date: 20190409
  Receipt Date: 20200924
  Transmission Date: 20201102
  Serious: Yes (Hospitalization, Other)
  Sender: FDA-Public Use
  Company Number: FR-009507513-1904FRA000665

PATIENT
  Age: 13 Year
  Sex: Male
  Weight: 53.7 kg

DRUGS (1)
  1. STROMECTOL [Suspect]
     Active Substance: IVERMECTIN
     Indication: ACARODERMATITIS
     Dosage: 12 MILLIGRAM, ONCE
     Route: 048
     Dates: start: 20170930, end: 20170930

REACTIONS (11)
  - Altered state of consciousness [Recovered/Resolved]
  - Pyramidal tract syndrome [Recovered/Resolved]
  - Coma [Recovered/Resolved]
  - Abdominal pain [Recovered/Resolved]
  - Diplopia [Recovered/Resolved]
  - Balance disorder [Recovered/Resolved]
  - Vomiting [Recovered/Resolved]
  - Gait disturbance [Unknown]
  - Dysarthria [Unknown]
  - Off label use [Unknown]
  - Ataxia [Unknown]

NARRATIVE: CASE EVENT DATE: 20170930
